FAERS Safety Report 15661216 (Version 1)
Quarter: 2018Q4

REPORT INFORMATION
  Report Type: Spontaneous
  Country: US (occurrence: US)
  Receive Date: 20181127
  Receipt Date: 20181127
  Transmission Date: 20190205
  Serious: Yes (Other)
  Sender: FDA-Public Use
  Company Number: US-CELGENEUS-USA-20181106545

PATIENT
  Age: 79 Year
  Sex: Male
  Weight: 78 kg

DRUGS (1)
  1. OTEZLA [Suspect]
     Active Substance: APREMILAST
     Indication: PSORIASIS
     Dosage: 60 MILLIGRAM
     Route: 048
     Dates: start: 201801, end: 201809

REACTIONS (2)
  - Deep vein thrombosis [Not Recovered/Not Resolved]
  - Diffuse large B-cell lymphoma stage I [Not Recovered/Not Resolved]

NARRATIVE: CASE EVENT DATE: 201807
